FAERS Safety Report 23528242 (Version 1)
Quarter: 2024Q1

REPORT INFORMATION
  Report Type: Report from Study
  Country: US (occurrence: US)
  Receive Date: 20240215
  Receipt Date: 20240215
  Transmission Date: 20240410
  Serious: Yes (Hospitalization, Other)
  Sender: FDA-Public Use
  Company Number: US-IOVANCE BIOTHERAPEUTICS INC - IOV2024000002

PATIENT

DRUGS (4)
  1. ALDESLEUKIN [Suspect]
     Active Substance: ALDESLEUKIN
     Indication: Product used for unknown indication
     Dosage: 3 X 10^6 IU INTERNATIONAL UNIT(S)
     Route: 058
     Dates: start: 20240118, end: 20240119
  2. ALDESLEUKIN [Suspect]
     Active Substance: ALDESLEUKIN
     Dosage: 3 X 10^6 IU INTERNATIONAL UNITS
     Route: 058
     Dates: start: 20240118
  3. FLUDARABINE [Suspect]
     Active Substance: FLUDARABINE PHOSPHATE
     Indication: B-cell lymphoma
     Dosage: 24 MG/M2/DAY, QD
     Route: 042
     Dates: start: 20240112
  4. CYCLOPHOSPHAMIDE [Suspect]
     Active Substance: CYCLOPHOSPHAMIDE
     Indication: B-cell lymphoma
     Dosage: UNK, QD
     Route: 042
     Dates: start: 20240112

REACTIONS (1)
  - Cytokine release syndrome [Not Recovered/Not Resolved]

NARRATIVE: CASE EVENT DATE: 20240118
